FAERS Safety Report 6923149-8 (Version None)
Quarter: 2010Q3

REPORT INFORMATION
  Report Type: 
  Country: None (occurrence: None)
  Receive Date: 20100813
  Receipt Date: 20100804
  Transmission Date: 20110219
  Serious: Yes (Hospitalization)
  Sender: FDA-Public Use
  Company Number: DE-ROCHE-696342

PATIENT
  Sex: Male
  Weight: 80 kg

DRUGS (1)
  1. CAPECITABINE [Suspect]
     Indication: COLORECTAL CANCER
     Dosage: LAST DOSE PRIOR TO EVENT: 22 JAN 2010
     Route: 048
     Dates: start: 20091214

REACTIONS (2)
  - INFECTION [None]
  - INTESTINAL ANASTOMOSIS COMPLICATION [None]
